FAERS Safety Report 7479065-9 (Version None)
Quarter: 2011Q2

REPORT INFORMATION
  Report Type: 
  Country: None (occurrence: None)
  Receive Date: 20110513
  Receipt Date: 20110510
  Transmission Date: 20111010
  Serious: Yes (Hospitalization)
  Sender: FDA-Public Use
  Company Number: NL-ABBOTT-11P-114-0708820-00

PATIENT
  Weight: 100 kg

DRUGS (12)
  1. OMEPRAZOLE [Concomitant]
     Indication: GASTRIC DISORDER
     Dosage: EC; 1 UNIT TWICE DAILY
     Route: 048
     Dates: start: 20020101
  2. ETORICOXIB [Concomitant]
     Indication: RHEUMATOID ARTHRITIS
     Dosage: 1 UNIT TWICE DAILY
     Route: 048
     Dates: start: 20101001
  3. METOPROLOL SUCCINATE [Concomitant]
     Indication: HYPERTENSION
     Dosage: SR (SUCCINATE); 1 UNIT DAILY
     Dates: start: 20020101
  4. TRIAMTERENE AND HYDROCHLOROTHIAZIDE [Concomitant]
     Indication: OEDEMA
  5. INSULINE ASPARATATE [Concomitant]
     Indication: TYPE 2 DIABETES MELLITUS
     Dosage: 100 U/ML CARTRIDGE 3 ML
     Dates: start: 20060101
  6. TRIAMTERENE AND HYDROCHLOROTHIAZIDE [Concomitant]
     Indication: HYPERTENSION
     Dosage: 50/25 MG; 1 UNIT DAILY
     Route: 048
     Dates: start: 20080101
  7. OMEPRAZOLE [Concomitant]
     Indication: PROPHYLAXIS
  8. SIMVASTATIN [Concomitant]
     Indication: BLOOD CHOLESTEROL INCREASED
     Dosage: COATED TABLET; 1 UNIT DAILY
     Route: 048
     Dates: start: 20020101
  9. HUMIRA [Suspect]
     Indication: RHEUMATOID ARTHRITIS
     Route: 058
     Dates: start: 20110112, end: 20110224
  10. AMLODIPINE MALEATE [Concomitant]
     Indication: HYPERTENSION
     Dosage: 1 UNIT DAILY
     Route: 048
     Dates: start: 20020101
  11. METFORMIN HCL [Concomitant]
     Indication: TYPE 2 DIABETES MELLITUS
     Dosage: 1 UNIT 3 TIMES DAILY
     Dates: start: 20080101
  12. INSULINE ASPARTATE/PROTAMINE [Concomitant]
     Indication: TYPE 2 DIABETES MELLITUS
     Dosage: 30/70 U/ML CARTRIDGE 3 ML
     Dates: start: 20060101

REACTIONS (3)
  - DYSPNOEA [None]
  - ABDOMINAL DISTENSION [None]
  - WEIGHT INCREASED [None]
